FAERS Safety Report 8443712-5 (Version None)
Quarter: 2012Q2

REPORT INFORMATION
  Report Type: 
  Country: None (occurrence: None)
  Receive Date: 20120618
  Receipt Date: 20120607
  Transmission Date: 20120825
  Serious: Yes (Hospitalization)
  Sender: FDA-Public Use
  Company Number: FR-ELI_LILLY_AND_COMPANY-FR201206002259

PATIENT
  Age: 54 Year
  Sex: Male

DRUGS (3)
  1. ZYPREXA [Suspect]
     Indication: AGITATION
     Dosage: 10 MG, UNK
     Route: 042
  2. ZYPREXA [Suspect]
     Route: 048
  3. XANAX [Concomitant]

REACTIONS (2)
  - AGITATION [None]
  - INCORRECT ROUTE OF DRUG ADMINISTRATION [None]
